FAERS Safety Report 10330958 (Version 2)
Quarter: 2014Q3

REPORT INFORMATION
  Report Type: Spontaneous
  Country: BR (occurrence: BR)
  Receive Date: 20140722
  Receipt Date: 20140902
  Transmission Date: 20150326
  Serious: Yes (Hospitalization)
  Sender: FDA-Public Use
  Company Number: BR-SA-2014SA095538

PATIENT
  Age: 80 Year
  Sex: Female

DRUGS (2)
  1. LANTUS [Suspect]
     Active Substance: INSULIN GLARGINE
     Indication: PRODUCT USED FOR UNKNOWN INDICATION
     Route: 065
  2. DEVICE NOS [Concomitant]
     Active Substance: DEVICE

REACTIONS (8)
  - Choking [Unknown]
  - Pharyngeal oedema [Unknown]
  - Asphyxia [Recovered/Resolved]
  - Hypoglycaemia [Unknown]
  - Dyspnoea [Recovered/Resolved]
  - Increased upper airway secretion [Unknown]
  - Blood glucose increased [Recovered/Resolved]
  - Aspiration [Unknown]

NARRATIVE: CASE EVENT DATE: 201407
